FAERS Safety Report 26210906 (Version 1)
Quarter: 2025Q4

REPORT INFORMATION
  Report Type: Spontaneous
  Country: EU (occurrence: EU)
  Receive Date: 20251230
  Receipt Date: 20251230
  Transmission Date: 20260117
  Serious: Yes (Other)
  Sender: MERCK KGAA
  Company Number: EU-Merck Healthcare KGaA-2025065846

PATIENT
  Age: 85 Year
  Sex: Female

DRUGS (3)
  1. LEVOTHYROXINE [Suspect]
     Active Substance: LEVOTHYROXINE
     Indication: Autoimmune thyroiditis
     Dosage: LEVOTHYROX 112MCG AND LEVOTHYROX 125MCG 1 DAY OUT OF 2?TREATMENT PERIOD: FOR 30 YEARS
  2. AMIODARONE [Suspect]
     Active Substance: AMIODARONE
     Indication: Heart rate irregular
     Dosage: FOR ABOUT 8 DAYS
  3. LANSOPRAZOLE [Suspect]
     Active Substance: LANSOPRAZOLE
     Indication: Product used for unknown indication
     Dosage: FOR ABOUT 8 DAYS

REACTIONS (4)
  - Near death experience [Unknown]
  - Hypothyroidism [Unknown]
  - Blood thyroid stimulating hormone decreased [Unknown]
  - Drug interaction [Unknown]
